FAERS Safety Report 21336300 (Version 1)
Quarter: 2022Q3

REPORT INFORMATION
  Report Type: Spontaneous
  Country: CZ (occurrence: CZ)
  Receive Date: 20220915
  Receipt Date: 20220915
  Transmission Date: 20221027
  Serious: Yes (Life-Threatening, Hospitalization, Other)
  Sender: FDA-Public Use
  Company Number: None

PATIENT

DRUGS (5)
  1. CEFOTAXIME SODIUM [Suspect]
     Active Substance: CEFOTAXIME SODIUM
     Indication: Endometritis
     Dosage: UNK
     Route: 065
  2. AMOXICILLIN\CLAVULANIC ACID [Suspect]
     Active Substance: AMOXICILLIN\CLAVULANIC ACID
     Indication: Toxic shock syndrome
     Dosage: UNK
     Route: 042
  3. METHYLPREDNISOLONE [Suspect]
     Active Substance: METHYLPREDNISOLONE
     Indication: Toxic shock syndrome
     Dosage: UNK
     Route: 065
  4. CLINDAMYCIN PHOSPHATE [Concomitant]
     Active Substance: CLINDAMYCIN PHOSPHATE
     Indication: Endometritis
     Dosage: UNK
     Route: 065
  5. GENTAMICIN SULFATE [Concomitant]
     Active Substance: GENTAMICIN SULFATE
     Indication: Endometritis
     Dosage: UNK
     Route: 065

REACTIONS (4)
  - Pulmonary embolism [Recovering/Resolving]
  - Pulmonary oedema [Recovering/Resolving]
  - General physical health deterioration [Recovering/Resolving]
  - Toxic epidermal necrolysis [Recovering/Resolving]
